FAERS Safety Report 6497853-2 (Version None)
Quarter: 2009Q4

REPORT INFORMATION
  Report Type: 
  Country: None (occurrence: None)
  Receive Date: 20091215
  Receipt Date: 20091209
  Transmission Date: 20100525
  Serious: Yes (Hospitalization)
  Sender: FDA-Public Use
  Company Number: JP-EISAI INC.-E2020-05709-SPO-JP

PATIENT
  Age: 83 Year
  Sex: Female
  Weight: 56 kg

DRUGS (2)
  1. ARICEPT [Suspect]
     Route: 048
  2. BISOPROLOL [Concomitant]
     Indication: HYPERTENSION

REACTIONS (3)
  - BRADYCARDIA [None]
  - ELECTROCARDIOGRAM QT PROLONGED [None]
  - TORSADE DE POINTES [None]
